FAERS Safety Report 10167848 (Version 1)
Quarter: 2014Q2

REPORT INFORMATION
  Report Type: Report from Study
  Country: AR (occurrence: AR)
  Receive Date: 20140512
  Receipt Date: 20140512
  Transmission Date: 20141212
  Serious: Yes (Death, Hospitalization, Other)
  Sender: FDA-Public Use
  Company Number: PHHY2014AR057284

PATIENT
  Age: 87 Year
  Sex: Female

DRUGS (2)
  1. EXELON [Suspect]
     Indication: COGNITIVE DISORDER
     Dosage: 1 DF, DAILY
     Route: 048
  2. EXELON [Suspect]
     Indication: DEMENTIA WITH LEWY BODIES

REACTIONS (4)
  - Cardio-respiratory arrest [Fatal]
  - Pneumonia [Unknown]
  - Gastrointestinal neoplasm [Unknown]
  - Liver disorder [Unknown]
